FAERS Safety Report 13728738 (Version 5)
Quarter: 2018Q3

REPORT INFORMATION
  Report Type: Report from Study
  Country: None (occurrence: US)
  Receive Date: 20170707
  Receipt Date: 20180726
  Transmission Date: 20181010
  Serious: Yes (Disabling, Other)
  Sender: FDA-Public Use
  Company Number: US-ABBVIE-17K-163-1877757-00

PATIENT
  Age: 57 Year
  Sex: Female
  Weight: 63.56 kg

DRUGS (2)
  1. SIMVASTATIN. [Concomitant]
     Active Substance: SIMVASTATIN
     Indication: BLOOD CHOLESTEROL INCREASED
  2. HUMIRA [Suspect]
     Active Substance: ADALIMUMAB
     Indication: UVEITIS
     Route: 058
     Dates: start: 20161111

REACTIONS (10)
  - Cataract [Not Recovered/Not Resolved]
  - Impaired healing [Not Recovered/Not Resolved]
  - Blindness unilateral [Unknown]
  - Diplopia [Not Recovered/Not Resolved]
  - Implant site extravasation [Not Recovered/Not Resolved]
  - Intraocular pressure increased [Recovered/Resolved]
  - Hyphaema [Unknown]
  - Injection site pain [Recovered/Resolved]
  - Intraocular pressure decreased [Unknown]
  - Uveitis [Unknown]

NARRATIVE: CASE EVENT DATE: 2016
